FAERS Safety Report 22142666 (Version 1)
Quarter: 2023Q1

REPORT INFORMATION
  Report Type: Spontaneous
  Country: US (occurrence: None)
  Receive Date: 20230324
  Receipt Date: 20230324
  Transmission Date: 20230418
  Serious: Yes (unspecified)
  Sender: FDA-Public Use
  Company Number: None

PATIENT
  Age: 28 Year
  Sex: Female

DRUGS (1)
  1. PARAGARD T 380A [Suspect]
     Active Substance: COPPER
     Dosage: OTHER ROUTE : INTRA-UTERINE;?
     Route: 050

REACTIONS (4)
  - Device breakage [None]
  - Complication of device removal [None]
  - Device issue [None]
  - Embedded device [None]

NARRATIVE: CASE EVENT DATE: 20230207
